FAERS Safety Report 19675463 (Version 2)
Quarter: 2021Q3

REPORT INFORMATION
  Report Type: Spontaneous
  Country: DE (occurrence: DE)
  Receive Date: 20210809
  Receipt Date: 20210816
  Transmission Date: 20211014
  Serious: Yes (Hospitalization, Other)
  Sender: FDA-Public Use
  Company Number: DE-MYLANLABS-2021M1048909

PATIENT
  Age: 18 Year
  Sex: Female

DRUGS (13)
  1. MIDAZOLAM. [Suspect]
     Active Substance: MIDAZOLAM
     Indication: PSYCHOTIC SYMPTOM
     Dosage: 2 MILLIGRAM
     Route: 042
  2. SODIUM CITRATE. [Concomitant]
     Active Substance: SODIUM CITRATE
     Dosage: 30 MILLILITER
  3. DIAZEPAM. [Suspect]
     Active Substance: DIAZEPAM
     Dosage: UNK
     Route: 065
  4. QUETIAPINE. [Suspect]
     Active Substance: QUETIAPINE
     Dosage: UNK
     Route: 065
  5. DIAZEPAM. [Suspect]
     Active Substance: DIAZEPAM
     Indication: SCHIZOAFFECTIVE DISORDER
     Dosage: 30 MILLIGRAM, QD
  6. MIDAZOLAM                          /00634103/ [Suspect]
     Active Substance: MIDAZOLAM HYDROCHLORIDE
     Indication: SEIZURE
     Dosage: 1.5 MILLIGRAM
     Route: 065
  7. METHOHEXITAL [Concomitant]
     Active Substance: METHOHEXITAL
     Indication: ANAESTHESIA
     Dosage: UNK 1MG/KG
  8. QUETIAPINE. [Suspect]
     Active Substance: QUETIAPINE
     Indication: SCHIZOAFFECTIVE DISORDER
     Dosage: 700 MICROGRAM, QD
     Route: 048
  9. GLYCOPYRRONIUM BROMIDE [Concomitant]
     Active Substance: GLYCOPYRROLATE
     Indication: PROPHYLAXIS
     Dosage: 0.2 MILLIGRAM
  10. QUETIAPINE. [Suspect]
     Active Substance: QUETIAPINE
     Dosage: 1000 MILLIGRAM, QD
     Route: 048
  11. SUCCINYLCHOLIN [Concomitant]
     Active Substance: SUCCINYLCHOLINE CHLORIDE
     Indication: MUSCLE RELAXANT THERAPY
     Dosage: UNK (1.5MG/KG (MILLIGRAM PER KILOGRAM)
  12. RISPERIDONE. [Suspect]
     Active Substance: RISPERIDONE
     Indication: SCHIZOAFFECTIVE DISORDER
     Dosage: 7 MILLIGRAM, QD
  13. MIDAZOLAM. [Suspect]
     Active Substance: MIDAZOLAM
     Indication: SEIZURE
     Dosage: 1.5 MILLIGRAM
     Route: 065

REACTIONS (8)
  - Aggression [Unknown]
  - Fear [Unknown]
  - Maternal exposure during pregnancy [Unknown]
  - Seizure [Unknown]
  - Memory impairment [Unknown]
  - Drug ineffective [Unknown]
  - Intentional product use issue [Unknown]
  - Off label use [Unknown]
